FAERS Safety Report 12225621 (Version 1)
Quarter: 2016Q1

REPORT INFORMATION
  Report Type: Spontaneous
  Country: None (occurrence: None)
  Receive Date: 20160330
  Receipt Date: 20160330
  Transmission Date: 20160526
  Serious: Yes (Other)
  Sender: FDA-Public Use
  Company Number: None

PATIENT
  Age: 25 Year
  Sex: Female
  Weight: 95.71 kg

DRUGS (8)
  1. MONTELUKAST [Concomitant]
     Active Substance: MONTELUKAST SODIUM
  2. SEASONALE BIRTH CONTROL [Concomitant]
  3. METFORMIN [Concomitant]
     Active Substance: METFORMIN HYDROCHLORIDE
  4. MULTIVITAMINS [Concomitant]
     Active Substance: VITAMINS
  5. FISH OIL [Concomitant]
     Active Substance: FISH OIL
  6. VICTOZA [Suspect]
     Active Substance: LIRAGLUTIDE
     Indication: DIABETES MELLITUS
     Dosage: 0.6 INJECTION(S) AT BEDTIME INJECTED INTO ABDOMEN
  7. LISINOPRIL. [Concomitant]
     Active Substance: LISINOPRIL
  8. SUPER B-COMPLEX [Concomitant]

REACTIONS (3)
  - Injection site hypoaesthesia [None]
  - Middle insomnia [None]
  - Hypoaesthesia [None]

NARRATIVE: CASE EVENT DATE: 20141012
